FAERS Safety Report 8791364 (Version 1)
Quarter: 2012Q4

REPORT INFORMATION
  Report Type: Spontaneous
  Country: US (occurrence: None)
  Receive Date: 20120914
  Receipt Date: 20120914
  Transmission Date: 20130627
  Serious: No
  Sender: FDA-Public Use
  Company Number: None

PATIENT
  Age: 70 Year
  Sex: Female
  Weight: 513.48 kg

DRUGS (1)
  1. RECLAST [Suspect]
     Route: 042
     Dates: start: 20120411

REACTIONS (3)
  - Injection site rash [None]
  - Rash pruritic [None]
  - Drug ineffective [None]
